FAERS Safety Report 8601431-6 (Version None)
Quarter: 2012Q3

REPORT INFORMATION
  Report Type: 
  Country: None (occurrence: None)
  Receive Date: 20120806
  Receipt Date: 20120725
  Transmission Date: 20120928
  Serious: Yes (Other)
  Sender: FDA-Public Use
  Company Number: DKLU1083461

PATIENT
  Age: 72 Year
  Sex: Male

DRUGS (18)
  1. CARBAMAZEPINE [Concomitant]
  2. NEURONTIN [Concomitant]
  3. NITROGLYCERIN (CLYCERYL TRINITRATE) [Concomitant]
  4. RAMIPRIL [Concomitant]
  5. PLAVIX [Concomitant]
  6. SABRIL [Suspect]
     Indication: PRODUCT USED FOR UNKNOWN INDICATION
     Dosage: 500 MG AM,ORAL1000 MG PM,ORAL1500MG, 2IN 1 D,ORAL,1000 MGAM, ORAL1500 MG,PMORAL,1000 MG, 2 IN 1
     Route: 048
     Dates: start: 20100501
  7. SABRIL [Suspect]
     Indication: PRODUCT USED FOR UNKNOWN INDICATION
     Dosage: 500 MG AM,ORAL1000 MG PM,ORAL1500MG, 2IN 1 D,ORAL,1000 MGAM, ORAL1500 MG,PMORAL,1000 MG, 2 IN 1
     Route: 048
     Dates: start: 20100501
  8. SABRIL [Suspect]
     Indication: PRODUCT USED FOR UNKNOWN INDICATION
     Dosage: 500 MG AM,ORAL1000 MG PM,ORAL1500MG, 2IN 1 D,ORAL,1000 MGAM, ORAL1500 MG,PMORAL,1000 MG, 2 IN 1
     Route: 048
     Dates: start: 20120601
  9. LAMOTRIGINE [Concomitant]
  10. SIMVASTATIN [Concomitant]
  11. PRADAXA [Concomitant]
  12. CARVEDILOL [Concomitant]
  13. ZONISAMIDE [Concomitant]
  14. BENZODIAZEPINES (BENZODIAZEPINE RELATED DRUGS) [Concomitant]
  15. DEPAKOTE [Concomitant]
  16. VIMPAT [Concomitant]
  17. PHENYTOIN(PHENYTOIN) [Concomitant]
  18. LEVETIRCETAM(LEVETIRCETAM) [Concomitant]

REACTIONS (4)
  - ATRIAL FIBRILLATION [None]
  - FATIGUE [None]
  - CONFUSIONAL STATE [None]
  - THINKING ABNORMAL [None]
